FAERS Safety Report 9293560 (Version 2)
Quarter: 2013Q2

REPORT INFORMATION
  Report Type: Report from Study
  Country: ES (occurrence: ES)
  Receive Date: 20130516
  Receipt Date: 20130607
  Transmission Date: 20140414
  Serious: Yes (Death)
  Sender: FDA-Public Use
  Company Number: ES-GLAXOSMITHKLINE-B0891856A

PATIENT
  Age: 81 Year
  Sex: Male

DRUGS (6)
  1. REVOLADE [Suspect]
     Indication: IDIOPATHIC THROMBOCYTOPENIC PURPURA
     Dosage: 25MG PER DAY
     Route: 048
     Dates: start: 201210
  2. LANSOPRAZOLE [Concomitant]
  3. SYMBICORT [Concomitant]
  4. SPIRIVA [Concomitant]
  5. MOVICOL [Concomitant]
  6. OXYGEN [Concomitant]

REACTIONS (1)
  - Bronchopneumonia [Fatal]
